FAERS Safety Report 18340138 (Version 1)
Quarter: 2020Q4

REPORT INFORMATION
  Report Type: Spontaneous
  Country: US (occurrence: US)
  Receive Date: 20201002
  Receipt Date: 20201002
  Transmission Date: 20210113
  Serious: Yes (Disabling, Other)
  Sender: FDA-Public Use
  Company Number: US-PURDUE-USA-2020-0168316

PATIENT
  Sex: Female

DRUGS (17)
  1. OXYCODONE HCL TABLETS (RHODES 91-490) [Suspect]
     Active Substance: OXYCODONE HYDROCHLORIDE
     Indication: OVERDOSE
     Dosage: UNK
     Route: 048
  2. HYDROMORPHONE HCL ORAL SOLUTION (RHODES) [Suspect]
     Active Substance: HYDROMORPHONE HYDROCHLORIDE
     Indication: OVERDOSE
     Dosage: UNK
     Route: 048
  3. MORPHINE SULFATE EXTENDED-RELEASE TABLETS (RHODES 74-769, 74-862) [Suspect]
     Active Substance: MORPHINE SULFATE
     Indication: OVERDOSE
     Dosage: UNK
     Route: 048
  4. OXYCODONE HCL CR TABLETS (SIMILAR TO NDA 22-272) [Suspect]
     Active Substance: OXYCODONE HYDROCHLORIDE
     Indication: OVERDOSE
     Dosage: UNK
     Route: 048
  5. OXYFAST [Suspect]
     Active Substance: OXYCODONE
     Indication: OVERDOSE
     Dosage: UNK
     Route: 065
  6. BUPRENORPHINE TRANSDERMAL PATCH (SIMILAR TO NDA 21-306) [Suspect]
     Active Substance: BUPRENORPHINE
     Indication: OVERDOSE
     Dosage: UNK
     Route: 062
  7. MSIR [Suspect]
     Active Substance: MORPHINE SULFATE
     Indication: OVERDOSE
     Dosage: UNK
     Route: 065
  8. BUTRANS [Suspect]
     Active Substance: BUPRENORPHINE
     Indication: OVERDOSE
     Dosage: UNK
     Route: 048
  9. OPANA [Suspect]
     Active Substance: OXYMORPHONE HYDROCHLORIDE
     Indication: OVERDOSE
     Dosage: UNK
     Route: 065
  10. HYSINGLA ER [Suspect]
     Active Substance: HYDROCODONE BITARTRATE
     Indication: OVERDOSE
     Dosage: UNK
     Route: 048
  11. HYDROMORPHONE HCL ORAL SOLUTION (RHODES) [Suspect]
     Active Substance: HYDROMORPHONE HYDROCHLORIDE
     Indication: OVERDOSE
     Dosage: UNK
     Route: 048
  12. HYDROCODONE BITARTRATE AND ACETAMINOPHEN [Suspect]
     Active Substance: ACETAMINOPHEN\HYDROCODONE BITARTRATE
     Indication: OVERDOSE
     Dosage: UNK
     Route: 048
  13. TRAMADOL. [Suspect]
     Active Substance: TRAMADOL
     Indication: OVERDOSE
     Dosage: UNK
     Route: 065
  14. OXYCONTIN [Suspect]
     Active Substance: OXYCODONE HYDROCHLORIDE
     Indication: OVERDOSE
     Dosage: UNK
     Route: 048
  15. DILAUDID [Suspect]
     Active Substance: HYDROMORPHONE HYDROCHLORIDE
     Indication: OVERDOSE
     Dosage: UNK
     Route: 048
  16. MS CONTIN [Suspect]
     Active Substance: MORPHINE SULFATE
     Indication: OVERDOSE
     Dosage: UNK
     Route: 048
  17. OXYCODONE/ ACETAMINOPHEN TABLETS [Suspect]
     Active Substance: ACETAMINOPHEN\OXYCODONE HYDROCHLORIDE
     Indication: OVERDOSE
     Dosage: UNK
     Route: 048

REACTIONS (11)
  - Depression [Unknown]
  - Autoimmune disorder [Unknown]
  - Overdose [Unknown]
  - Drug tolerance [Unknown]
  - Disability [Unknown]
  - Accident [Unknown]
  - General physical health deterioration [Unknown]
  - Drug dependence [Unknown]
  - Fear [Unknown]
  - Gastrointestinal disorder [Unknown]
  - Decreased interest [Unknown]
